FAERS Safety Report 8204242-9 (Version None)
Quarter: 2012Q1

REPORT INFORMATION
  Report Type: 
  Country: None (occurrence: None)
  Receive Date: 20120313
  Receipt Date: 20120302
  Transmission Date: 20120608
  Serious: Yes (Other)
  Sender: FDA-Public Use
  Company Number: DE-BRISTOL-MYERS SQUIBB COMPANY-16363392

PATIENT
  Age: 81 Year
  Sex: Female
  Weight: 44 kg

DRUGS (11)
  1. LANTUS [Concomitant]
     Indication: DIABETES MELLITUS
  2. RAMIPRIL PLUS [Concomitant]
     Indication: HYPERTENSION
  3. RITUXIMAB [Concomitant]
     Indication: HAIRY CELL LEUKAEMIA
     Dates: start: 20040101
  4. GLUCOPHAGE [Suspect]
     Indication: TYPE 2 DIABETES MELLITUS
     Route: 048
     Dates: start: 20050101, end: 20120118
  5. JANUVIA [Concomitant]
     Indication: TYPE 2 DIABETES MELLITUS
     Dates: start: 20050101, end: 20120118
  6. DIGOXIN [Interacting]
     Dates: start: 19950101
  7. CLADRIBINE [Concomitant]
     Indication: HAIRY CELL LEUKAEMIA
     Dates: start: 20010101
  8. LANITOP [Concomitant]
     Dates: start: 19950101
  9. MARCUMAR [Interacting]
     Indication: MITRAL VALVE STENOSIS
     Dates: start: 19850101
  10. MARCUMAR [Interacting]
     Indication: ATRIAL FIBRILLATION
     Dates: start: 19850101
  11. MARCUMAR [Interacting]
     Indication: MITRAL VALVE REPLACEMENT
     Dates: start: 19850101

REACTIONS (5)
  - DRUG INTERACTION [None]
  - CEREBRAL ARTERY EMBOLISM [None]
  - DYSGEUSIA [None]
  - RENAL IMPAIRMENT [None]
  - HEMIPARESIS [None]
